FAERS Safety Report 6033070-8 (Version None)
Quarter: 2009Q1

REPORT INFORMATION
  Report Type: 
  Country: None (occurrence: None)
  Receive Date: 20090109
  Receipt Date: 20081230
  Transmission Date: 20090719
  Serious: Yes (Death)
  Sender: FDA-Public Use
  Company Number: IR-ROCHE-606149

PATIENT

DRUGS (2)
  1. CEFTRIAXONE SODIUM [Suspect]
     Route: 042
  2. CLINDAMYCIN HCL [Suspect]
     Dosage: FOR 7 TO 10 DAYS DURATION
     Route: 042

REACTIONS (1)
  - DEATH [None]
